FAERS Safety Report 11440547 (Version 1)
Quarter: 2015Q3

REPORT INFORMATION
  Report Type: Spontaneous
  Country: DE (occurrence: DE)
  Receive Date: 20150901
  Receipt Date: 20150901
  Transmission Date: 20151125
  Serious: Yes (Life-Threatening)
  Sender: FDA-Public Use
  Company Number: DE-HOSPIRA-2984714

PATIENT
  Age: 68 Year
  Sex: Female
  Weight: 59 kg

DRUGS (19)
  1. FOLIC ACID. [Suspect]
     Active Substance: FOLIC ACID
     Indication: PRODUCT USED FOR UNKNOWN INDICATION
     Dosage: 3 MONTHS, 5 CYCLES FOLFOXIRI
     Dates: start: 200907, end: 200910
  2. OXALIPLATIN. [Suspect]
     Active Substance: OXALIPLATIN
     Indication: PRODUCT USED FOR UNKNOWN INDICATION
     Dosage: 3 MONTHS, 5 CYCLES FOLFOXIRI
     Dates: start: 200907, end: 200910
  3. FLUOROURACIL. [Suspect]
     Active Substance: FLUOROURACIL
     Indication: PRODUCT USED FOR UNKNOWN INDICATION
     Dosage: 9 TO 10 CYCLES CONSERVATION THERAPY 5-FU/LEUCOVORIN (50% OF THE DOSE)
     Dates: start: 201505, end: 201506
  4. CALCIUM FOLINATE [Suspect]
     Active Substance: LEUCOVORIN CALCIUM
     Indication: PRODUCT USED FOR UNKNOWN INDICATION
     Dosage: 6 MONTHS, 12 CYCLES FOLFOX (875% DOSE) IN COMBINATION WITH AVASTIN SINCE THE 5TH
     Dates: start: 201402, end: 201408
  5. FLUOROURACIL. [Suspect]
     Active Substance: FLUOROURACIL
     Indication: PRODUCT USED FOR UNKNOWN INDICATION
     Dosage: 2 CYCLES FOLFOX
     Dates: start: 2010, end: 201010
  6. CALCIUM FOLINATE [Suspect]
     Active Substance: LEUCOVORIN CALCIUM
     Indication: PRODUCT USED FOR UNKNOWN INDICATION
     Dosage: 6 CYCLES CONSERVATION THERAPY 5-FU/LEUCOVORIN (75% OF THE DOSE)
     Dates: start: 201502, end: 201503
  7. OXALIPLATIN. [Suspect]
     Active Substance: OXALIPLATIN
     Indication: PRODUCT USED FOR UNKNOWN INDICATION
     Dosage: 2 CYCLES FOLFOX
     Dates: start: 2010, end: 201010
  8. FLUOROURACIL. [Suspect]
     Active Substance: FLUOROURACIL
     Indication: PRODUCT USED FOR UNKNOWN INDICATION
     Dosage: 4 CYCLES CONSERVATION THERAPY 5-FU/LEUCOVORIN (50% OF THE DOSE)
     Dates: start: 201410, end: 201412
  9. OXALIPLATIN. [Suspect]
     Active Substance: OXALIPLATIN
     Indication: PRODUCT USED FOR UNKNOWN INDICATION
     Dosage: 6 MONTHS, 12 CYCLES FOLFOX (875% DOSE) IN COMBINATION WITH AVASTIN SINCE THE 5TH
     Dates: start: 201402, end: 201408
  10. CALCIUM FOLINATE [Suspect]
     Active Substance: LEUCOVORIN CALCIUM
     Indication: PRODUCT USED FOR UNKNOWN INDICATION
     Dosage: 5 CYCLES CONSERVATION THERAPY 5-FU/LEUCOVORIN (50% OF THE DOSE)
     Dates: start: 201501
  11. FLUOROURACIL. [Suspect]
     Active Substance: FLUOROURACIL
     Indication: PRODUCT USED FOR UNKNOWN INDICATION
     Dosage: 6 CYCLES CONSERVATION THERAPY 5-FU/LEUCOVORIN (75% OF THE DOSE)
     Dates: start: 201502, end: 201503
  12. CALCIUM FOLINATE [Suspect]
     Active Substance: LEUCOVORIN CALCIUM
     Indication: PRODUCT USED FOR UNKNOWN INDICATION
     Dosage: 2 CYCLES FOLFOX
     Dates: start: 2010, end: 201010
  13. CALCIUM FOLINATE [Suspect]
     Active Substance: LEUCOVORIN CALCIUM
     Indication: PRODUCT USED FOR UNKNOWN INDICATION
     Dosage: 9 TO 10 CYCLES CONSERVATION THERAPY 5-FU/LEUCOVORIN (50% OF THE DOSE)
     Dates: start: 201505, end: 201506
  14. FLUOROURACIL. [Suspect]
     Active Substance: FLUOROURACIL
     Indication: PRODUCT USED FOR UNKNOWN INDICATION
     Dosage: 3 MONTHS, 5 CYCLES FOLFOXIRI
     Dates: start: 200907, end: 200910
  15. FLUOROURACIL. [Suspect]
     Active Substance: FLUOROURACIL
     Indication: PRODUCT USED FOR UNKNOWN INDICATION
     Dosage: 6 MONTHS, 12 CYCLES FOLFOX (875% DOSE) IN COMBINATION WITH AVASTIN SINCE THE 5TH
     Dates: start: 201402, end: 201408
  16. FLUOROURACIL. [Suspect]
     Active Substance: FLUOROURACIL
     Indication: PRODUCT USED FOR UNKNOWN INDICATION
     Dosage: 5 CYCLES CONSERVATION THERAPY 5-FU/LEUCOVORIN (50% OF THE DOSE)
     Dates: start: 20150114
  17. AVASTIN [Suspect]
     Active Substance: BEVACIZUMAB
     Indication: PRODUCT USED FOR UNKNOWN INDICATION
     Dosage: 12 CYCLES FOLFOX (875% DOSE) IN COMBINATION WITH AVASTIN SINCE THE 5TH
     Dates: end: 201408
  18. IRINOTECAN HYDROCHLORIDE. [Suspect]
     Active Substance: IRINOTECAN HYDROCHLORIDE
     Indication: PRODUCT USED FOR UNKNOWN INDICATION
     Dosage: 3 MONTHS, 5 CYCLES FOLFOXIRI
     Dates: start: 200907, end: 200910
  19. CALCIUM FOLINATE [Suspect]
     Active Substance: LEUCOVORIN CALCIUM
     Indication: PRODUCT USED FOR UNKNOWN INDICATION
     Dosage: 4 CYCLES CONSERVATION THERAPY 5-FU/LEUCOVORIN (50% OF THE DOSE)
     Dates: start: 201410, end: 201412

REACTIONS (1)
  - Acute lymphocytic leukaemia [Not Recovered/Not Resolved]

NARRATIVE: CASE EVENT DATE: 201507
